FAERS Safety Report 4717250-7 (Version None)
Quarter: 2005Q3

REPORT INFORMATION
  Report Type: 
  Country: None (occurrence: None)
  Receive Date: 20050719
  Receipt Date: 20050707
  Transmission Date: 20060218
  Serious: Yes (Hospitalization)
  Sender: FDA-Public Use
  Company Number: PHRM2005FR02057

PATIENT
  Age: 65 Year
  Sex: Female

DRUGS (8)
  1. INSULATARD [Suspect]
     Dosage: 58 U/DAY
     Route: 058
  2. TOPALGIC [Suspect]
     Dosage: 150 MG, BID
     Route: 048
     Dates: end: 20050502
  3. ZALDIAR [Suspect]
     Dosage: 4 DF, QD
     Route: 048
     Dates: start: 20050502, end: 20050504
  4. PLAVIX [Suspect]
     Dosage: 75 MG, QD
     Route: 048
  5. RAMIPRIL [Suspect]
     Dosage: 5 MG, QD
     Route: 048
  6. LASIX [Concomitant]
     Dosage: 40 MG, QD
     Route: 048
  7. OMEPRAZOLE [Concomitant]
     Dosage: 10 MG, QD
     Route: 048
  8. VOLTAREN [Suspect]
     Route: 065

REACTIONS (9)
  - ARTHRALGIA [None]
  - BLOOD PRESSURE SYSTOLIC INCREASED [None]
  - DYSKINESIA [None]
  - GAMMA-GLUTAMYLTRANSFERASE INCREASED [None]
  - HEMIPLEGIA [None]
  - HYPERTONIA [None]
  - MUSCLE CONTRACTIONS INVOLUNTARY [None]
  - MYOCLONUS [None]
  - PARAESTHESIA [None]
